FAERS Safety Report 5069315-0 (Version None)
Quarter: 2006Q3

REPORT INFORMATION
  Report Type: 
  Country: None (occurrence: None)
  Receive Date: 20060803
  Receipt Date: 20060717
  Transmission Date: 20061208
  Serious: Yes (Death, Hospitalization)
  Sender: FDA-Public Use
  Company Number: PHEH2006US09399

PATIENT
  Age: 12 Year
  Sex: Female
  Weight: 30.993 kg

DRUGS (2)
  1. EXJADE [Suspect]
     Dosage: UNK, UNK
     Dates: start: 20060201
  2. EXJADE [Suspect]
     Dosage: 750 MG, QD
     Route: 048
     Dates: start: 20060315, end: 20060609

REACTIONS (10)
  - BACK PAIN [None]
  - BLOOD CULTURE POSITIVE [None]
  - CSF TEST ABNORMAL [None]
  - ESCHERICHIA INFECTION [None]
  - ESCHERICHIA SEPSIS [None]
  - LUMBAR PUNCTURE ABNORMAL [None]
  - MENINGITIS BACTERIAL [None]
  - NAUSEA [None]
  - RESPIRATORY FAILURE [None]
  - SEPTIC SHOCK [None]
